FAERS Safety Report 9931216 (Version 1)
Quarter: 2014Q1

REPORT INFORMATION
  Report Type: Report from Study
  Country: US (occurrence: US)
  Receive Date: 20140228
  Receipt Date: 20140228
  Transmission Date: 20141002
  Serious: Yes (Other)
  Sender: FDA-Public Use
  Company Number: US-ROCHE-1331140

PATIENT
  Sex: Female
  Weight: 62.65 kg

DRUGS (35)
  1. AVASTIN [Suspect]
     Indication: BREAST CANCER
     Route: 065
     Dates: start: 20090904
  2. AVASTIN [Suspect]
     Indication: METASTASES TO LIVER
     Route: 065
     Dates: start: 20110429
  3. AVASTIN [Suspect]
     Route: 065
     Dates: start: 20110603
  4. AVASTIN [Suspect]
     Route: 065
     Dates: start: 20120808
  5. TRASTUZUMAB [Suspect]
     Indication: BREAST CANCER
     Route: 065
     Dates: start: 200509
  6. AMBIEN [Concomitant]
     Route: 065
  7. ARIMIDEX [Concomitant]
     Route: 065
     Dates: start: 200703, end: 200704
  8. ARIMIDEX [Concomitant]
     Route: 065
     Dates: end: 200901
  9. ATIVAN [Concomitant]
     Route: 065
  10. COZAAR [Concomitant]
     Route: 065
  11. FLONASE [Concomitant]
     Dosage: NASAL SPRAY 1 PUSS EVERY DAY BEFORE SLEEP
     Route: 045
  12. FOLVITE [Concomitant]
     Route: 065
  13. LEXAPRO [Concomitant]
     Route: 065
  14. NEURONTIN (UNITED STATES) [Concomitant]
     Route: 065
  15. PREVACID [Concomitant]
     Dosage: IN THE MORNING
     Route: 065
  16. PROCTOFOAM (UNITED STATES) [Concomitant]
     Dosage: AS DIRECTED
     Route: 065
  17. SENNA [Concomitant]
     Route: 065
  18. ZANTAC [Concomitant]
     Dosage: BEFORE SLEEP
     Route: 065
  19. ABRAXANE [Concomitant]
     Route: 065
     Dates: start: 20110603
  20. FASLODEX [Concomitant]
     Route: 065
     Dates: start: 20120727
  21. ALLEGRA [Concomitant]
     Route: 065
  22. TAXOL [Concomitant]
     Route: 065
     Dates: start: 200509
  23. CARBOPLATIN [Concomitant]
     Route: 065
     Dates: start: 200509
  24. CYTOXAN [Concomitant]
     Route: 065
     Dates: start: 200608, end: 200610
  25. CYTOXAN [Concomitant]
     Route: 065
     Dates: start: 20090206, end: 200907
  26. 5-FU [Concomitant]
     Route: 065
     Dates: start: 20101001
  27. GEMZAR [Concomitant]
     Route: 065
     Dates: start: 200701, end: 200703
  28. VP-16 [Concomitant]
     Route: 048
     Dates: start: 201201
  29. RECLAST [Concomitant]
     Dosage: ANNUAL
     Route: 065
     Dates: start: 20111202
  30. TAXOTERE [Concomitant]
     Route: 065
     Dates: start: 200603
  31. METHOTREXATE [Concomitant]
     Route: 065
     Dates: start: 20101001
  32. DOXIL (UNITED STATES) [Concomitant]
     Route: 065
     Dates: start: 200608, end: 200610
  33. DOXIL (UNITED STATES) [Concomitant]
     Route: 065
     Dates: start: 20090206, end: 200907
  34. TYKERB [Concomitant]
     Route: 065
     Dates: start: 200703, end: 200704
  35. AROMASIN [Concomitant]
     Route: 065
     Dates: start: 200901

REACTIONS (11)
  - Chest pain [Unknown]
  - Pancytopenia [Unknown]
  - Disease progression [Unknown]
  - Neuropathy peripheral [Unknown]
  - Rash [Unknown]
  - Diarrhoea [Unknown]
  - Mastitis [Recovered/Resolved]
  - Osteoporosis [Unknown]
  - Anaemia [Unknown]
  - Vitamin D deficiency [Unknown]
  - Back pain [Unknown]
